FAERS Safety Report 5030680-1 (Version None)
Quarter: 2006Q2

REPORT INFORMATION
  Report Type: 
  Country: None (occurrence: None)
  Receive Date: 20060615
  Receipt Date: 20060605
  Transmission Date: 20061013
  Serious: Yes (Hospitalization)
  Sender: FDA-Public Use
  Company Number: 2006063346

PATIENT
  Age: 74 Year
  Sex: Male

DRUGS (4)
  1. IRINOTECAN HCL [Suspect]
     Indication: COLON CANCER
     Dosage: 360 MG (CYCLIC), INTRAVENOUS
     Route: 042
     Dates: start: 20060130, end: 20060314
  2. ERBITUX [Suspect]
     Indication: COLON CANCER
     Dosage: (500 G, 1 IN 1 WK), INTRAVENOUS
     Route: 042
     Dates: start: 20060201, end: 20060322
  3. FLUOROURACIL [Concomitant]
  4. ENOXAPARIN SODIUM [Concomitant]

REACTIONS (3)
  - ACUTE RESPIRATORY FAILURE [None]
  - INTERSTITIAL LUNG DISEASE [None]
  - LIVER DISORDER [None]
